FAERS Safety Report 21298197 (Version 5)
Quarter: 2023Q2

REPORT INFORMATION
  Report Type: Report from Study
  Country: US (occurrence: US)
  Receive Date: 20220906
  Receipt Date: 20230428
  Transmission Date: 20230721
  Serious: Yes (Other)
  Sender: FDA-Public Use
  Company Number: US-TAKEDA-2017BLT001598

PATIENT
  Sex: Female

DRUGS (2)
  1. HUMAN IMMUNOGLOBULIN G [Suspect]
     Active Substance: HUMAN IMMUNOGLOBULIN G
     Indication: Primary immunodeficiency syndrome
     Dosage: 30 GRAM, MONTHLY
     Route: 042
  2. HUMAN IMMUNOGLOBULIN G [Suspect]
     Active Substance: HUMAN IMMUNOGLOBULIN G
     Indication: Immunodeficiency common variable

REACTIONS (11)
  - Cataract [Unknown]
  - Renal cancer recurrent [Unknown]
  - Sensitive skin [Unknown]
  - Fall [Unknown]
  - Skin laceration [Unknown]
  - Ultrasound abdomen abnormal [Unknown]
  - Irritability [Unknown]
  - Balance disorder [Unknown]
  - Dizziness [Unknown]
  - Headache [Unknown]
  - Pain in extremity [Unknown]
